FAERS Safety Report 21687463 (Version 2)
Quarter: 2022Q4

REPORT INFORMATION
  Report Type: Report from Study
  Country: IL (occurrence: IL)
  Receive Date: 20221206
  Receipt Date: 20221207
  Transmission Date: 20230113
  Serious: Yes (Hospitalization, Other)
  Sender: FDA-Public Use
  Company Number: IL-BRISTOL-MYERS SQUIBB COMPANY-2022-148256

PATIENT
  Age: 60 Year
  Sex: Male

DRUGS (2)
  1. NIVOLUMAB [Suspect]
     Active Substance: NIVOLUMAB
     Indication: Kaposi^s sarcoma classical type
     Route: 042
     Dates: start: 20210222
  2. IPILIMUMAB [Suspect]
     Active Substance: IPILIMUMAB
     Indication: Kaposi^s sarcoma classical type
     Route: 042
     Dates: start: 20210222

REACTIONS (1)
  - Cholecystitis infective [Unknown]

NARRATIVE: CASE EVENT DATE: 20221205
